FAERS Safety Report 6128153-8 (Version None)
Quarter: 2009Q1

REPORT INFORMATION
  Report Type: 
  Country: None (occurrence: None)
  Receive Date: 20090323
  Receipt Date: 20090310
  Transmission Date: 20090719
  Serious: Yes (Hospitalization, Other)
  Sender: FDA-Public Use
  Company Number: US-ROCHE-620015

PATIENT
  Sex: Male
  Weight: 81.7 kg

DRUGS (6)
  1. PEG-INTERFERON ALFA 2A (RO 25-8310) [Suspect]
     Dosage: DRUG PERMANENTLY DISCONTINUED ON 08 DECEMBER 2008
     Route: 058
     Dates: start: 20080808, end: 20081208
  2. RIBAVIRIN [Suspect]
     Route: 048
     Dates: start: 20080808
  3. RIBAVIRIN [Suspect]
     Dosage: DRUG PERMANENTLY DISCONTINUED ON 08 DECEMBER 2008
     Route: 048
     Dates: end: 20081208
  4. GLYBURIDE [Concomitant]
  5. EPOETIN ALPHA [Concomitant]
     Dosage: DOSE REPORTED AS 40 KMOL/WEEK
     Dates: start: 20081015, end: 20081208
  6. LISINOPRIL [Concomitant]

REACTIONS (4)
  - ANOREXIA [None]
  - ASTHENIA [None]
  - DIABETES MELLITUS INADEQUATE CONTROL [None]
  - ORTHOSTATIC HYPOTENSION [None]
